FAERS Safety Report 18790401 (Version 1)
Quarter: 2021Q1

REPORT INFORMATION
  Report Type: Spontaneous
  Country: NZ (occurrence: NZ)
  Receive Date: 20210126
  Receipt Date: 20210126
  Transmission Date: 20210419
  Serious: Yes (Hospitalization, Other)
  Sender: FDA-Public Use
  Company Number: NZ-LUPIN PHARMACEUTICALS INC.-2021-00540

PATIENT
  Age: 69 Year
  Sex: Female

DRUGS (4)
  1. TENOFOVIR [Suspect]
     Active Substance: TENOFOVIR
     Indication: CHRONIC HEPATITIS B
     Dosage: UNK
     Route: 065
  2. VITAMIN D [COLECALCIFEROL] [Concomitant]
     Active Substance: CHOLECALCIFEROL
     Indication: PALLIATIVE CARE
     Dosage: UNK (STOPPED)
     Route: 065
  3. LAMIVUDINE. [Suspect]
     Active Substance: LAMIVUDINE
     Indication: CHRONIC HEPATITIS B
     Dosage: UNK
     Route: 065
  4. ZOLEDRONATE [Suspect]
     Active Substance: ZOLEDRONIC ACID
     Indication: OSTEOPENIA
     Dosage: 5 MILLIGRAM, UNK
     Route: 042

REACTIONS (4)
  - Hypophosphataemic osteomalacia [Recovered/Resolved]
  - Drug resistance [Unknown]
  - Fanconi syndrome [Recovered/Resolved]
  - Condition aggravated [Recovered/Resolved]
